FAERS Safety Report 6157208-7 (Version None)
Quarter: 2009Q2

REPORT INFORMATION
  Report Type: 
  Country: None (occurrence: None)
  Receive Date: 20090416
  Receipt Date: 20090323
  Transmission Date: 20091009
  Serious: Yes (Death)
  Sender: FDA-Public Use
  Company Number: BE-MERCK-0903BEL00022

PATIENT
  Age: 58 Year
  Sex: Female
  Weight: 51 kg

DRUGS (7)
  1. CANCIDAS [Suspect]
     Indication: EVIDENCE BASED TREATMENT
     Route: 041
     Dates: start: 20071024, end: 20071031
  2. CANCIDAS [Suspect]
     Route: 041
     Dates: start: 20071101, end: 20071106
  3. MEROPENEM [Concomitant]
     Route: 041
     Dates: start: 20071107, end: 20071119
  4. VORICONAZOLE [Concomitant]
     Indication: EVIDENCE BASED TREATMENT
     Route: 048
     Dates: start: 20071106, end: 20071113
  5. VORICONAZOLE [Concomitant]
     Route: 048
     Dates: start: 20071114, end: 20071120
  6. VANCOMYCIN [Concomitant]
     Route: 041
     Dates: start: 20071018, end: 20071030
  7. CORTICOSTEROIDS (UNSPECIFIED) [Concomitant]
     Route: 065

REACTIONS (3)
  - DRUG INEFFECTIVE [None]
  - OVERDOSE [None]
  - PNEUMONIA [None]
